FAERS Safety Report 24116989 (Version 1)
Quarter: 2024Q3

REPORT INFORMATION
  Report Type: Spontaneous
  Country: AU (occurrence: AU)
  Receive Date: 20240722
  Receipt Date: 20240722
  Transmission Date: 20241016
  Serious: Yes (Death, Life-Threatening, Hospitalization)
  Sender: STRIDES
  Company Number: AU-STRIDES ARCOLAB LIMITED-2024SP008488

PATIENT
  Age: 4 Decade
  Sex: Male

DRUGS (28)
  1. ETOPOSIDE [Suspect]
     Active Substance: ETOPOSIDE
     Indication: Haemophagocytic lymphohistiocytosis
     Dosage: UNK
     Route: 065
  2. LEVETIRACETAM [Suspect]
     Active Substance: LEVETIRACETAM
     Indication: Febrile infection-related epilepsy syndrome
     Dosage: UNK
     Route: 065
  3. GABAPENTIN [Suspect]
     Active Substance: GABAPENTIN
     Indication: Febrile infection-related epilepsy syndrome
     Dosage: UNK
     Route: 065
  4. ACETAZOLAMIDE [Suspect]
     Active Substance: ACETAZOLAMIDE
     Indication: Febrile infection-related epilepsy syndrome
     Dosage: UNK
     Route: 065
  5. LACOSAMIDE [Suspect]
     Active Substance: LACOSAMIDE
     Indication: Febrile infection-related epilepsy syndrome
     Dosage: UNK
     Route: 065
  6. METHOTREXATE [Suspect]
     Active Substance: METHOTREXATE
     Indication: Haemophagocytic lymphohistiocytosis
     Dosage: UNK
     Route: 065
  7. TOPIRAMATE [Suspect]
     Active Substance: TOPIRAMATE
     Indication: Febrile infection-related epilepsy syndrome
     Dosage: UNK
     Route: 065
  8. PHENOBARBITAL [Suspect]
     Active Substance: PHENOBARBITAL
     Indication: Febrile infection-related epilepsy syndrome
     Dosage: UNK
     Route: 065
  9. ACYCLOVIR [Suspect]
     Active Substance: ACYCLOVIR
     Indication: Encephalitis
     Dosage: UNK
     Route: 065
  10. VANCOMYCIN [Suspect]
     Active Substance: VANCOMYCIN
     Indication: Encephalitis
     Dosage: UNK
     Route: 065
  11. MIDAZOLAM [Suspect]
     Active Substance: MIDAZOLAM
     Indication: Febrile infection-related epilepsy syndrome
     Dosage: UNK (MULTIPLE DOSES)
     Route: 065
  12. THIOPENTAL SODIUM [Suspect]
     Active Substance: THIOPENTAL SODIUM
     Indication: Febrile infection-related epilepsy syndrome
     Dosage: UNK
     Route: 065
  13. CARBAMAZEPINE [Suspect]
     Active Substance: CARBAMAZEPINE
     Indication: Febrile infection-related epilepsy syndrome
     Dosage: UNK
     Route: 065
  14. CLONAZEPAM [Suspect]
     Active Substance: CLONAZEPAM
     Indication: Febrile infection-related epilepsy syndrome
     Dosage: UNK
     Route: 065
  15. VALPROATE SODIUM [Suspect]
     Active Substance: VALPROATE SODIUM
     Indication: Febrile infection-related epilepsy syndrome
     Dosage: UNK
     Route: 065
  16. PHENYTOIN [Suspect]
     Active Substance: PHENYTOIN
     Indication: Febrile infection-related epilepsy syndrome
     Dosage: UNK
     Route: 065
  17. PROPOFOL [Suspect]
     Active Substance: PROPOFOL
     Indication: Febrile infection-related epilepsy syndrome
     Dosage: UNK
     Route: 065
  18. METHYLPREDNISOLONE [Suspect]
     Active Substance: METHYLPREDNISOLONE
     Indication: Febrile infection-related epilepsy syndrome
     Dosage: UNK (ADMINISTERED UNDER A TRIAL)
     Route: 065
  19. HUMAN IMMUNOGLOBULIN G [Suspect]
     Active Substance: HUMAN IMMUNOGLOBULIN G
     Indication: Febrile infection-related epilepsy syndrome
     Dosage: UNK (ADMINISTERED UNDER A TRIAL)
     Route: 042
  20. DEXAMETHASONE [Suspect]
     Active Substance: DEXAMETHASONE
     Indication: Encephalitis
     Dosage: UNK
     Route: 065
  21. DEXAMETHASONE [Suspect]
     Active Substance: DEXAMETHASONE
     Indication: Haemophagocytic lymphohistiocytosis
     Dosage: UNK
     Route: 065
  22. ANAKINRA [Suspect]
     Active Substance: ANAKINRA
     Indication: Haemophagocytic lymphohistiocytosis
     Dosage: UNK
     Route: 065
  23. CLOBAZAM [Suspect]
     Active Substance: CLOBAZAM
     Indication: Febrile infection-related epilepsy syndrome
     Dosage: UNK
     Route: 065
  24. VIGABATRIN [Suspect]
     Active Substance: VIGABATRIN
     Indication: Febrile infection-related epilepsy syndrome
     Dosage: UNK
     Route: 065
  25. PERAMPANEL [Suspect]
     Active Substance: PERAMPANEL
     Indication: Febrile infection-related epilepsy syndrome
     Dosage: UNK
     Route: 065
  26. OXCARBAZEPINE [Suspect]
     Active Substance: OXCARBAZEPINE
     Indication: Febrile infection-related epilepsy syndrome
     Dosage: UNK
     Route: 065
  27. MEXILETINE [Suspect]
     Active Substance: MEXILETINE
     Indication: Febrile infection-related epilepsy syndrome
     Dosage: UNK
     Route: 065
  28. CEFTRIAXONE [Concomitant]
     Active Substance: CEFTRIAXONE\CEFTRIAXONE SODIUM
     Indication: Encephalitis
     Dosage: UNK
     Route: 065

REACTIONS (3)
  - Pneumonia aspiration [Fatal]
  - Therapy non-responder [Unknown]
  - Off label use [Unknown]
